FAERS Safety Report 7126709-7 (Version None)
Quarter: 2010Q4

REPORT INFORMATION
  Report Type: 
  Country: None (occurrence: None)
  Receive Date: 20101129
  Receipt Date: 20101125
  Transmission Date: 20110411
  Serious: Yes (Death, Congenital Anomaly)
  Sender: FDA-Public Use
  Company Number: FR-GILEAD-2010-0030216

PATIENT

DRUGS (3)
  1. TRUVADA [Suspect]
     Indication: HIV INFECTION
     Route: 064
     Dates: start: 20090101
  2. VIRAMUNE [Suspect]
     Route: 064
     Dates: start: 20090101
  3. RETROVIR [Concomitant]

REACTIONS (1)
  - HYPOPLASTIC LEFT HEART SYNDROME [None]
